FAERS Safety Report 10371370 (Version 1)
Quarter: 2014Q3

REPORT INFORMATION
  Report Type: Spontaneous
  Country: FR (occurrence: None)
  Receive Date: 20140806
  Receipt Date: 20140806
  Transmission Date: 20150326
  Serious: Yes (Other)
  Sender: FDA-Public Use
  Company Number: 229057

PATIENT
  Age: 46 Year
  Sex: Female
  Weight: 50 kg

DRUGS (1)
  1. PICATO [Suspect]
     Active Substance: INGENOL MEBUTATE
     Indication: ACTINIC KERATOSIS
     Route: 061
     Dates: start: 20140723, end: 20140723

REACTIONS (11)
  - Pain [None]
  - Application site ulcer [None]
  - Application site warmth [None]
  - Oedema [None]
  - Application site erythema [None]
  - Application site vesicles [None]
  - Application site pruritus [None]
  - Application site pain [None]
  - Application site paraesthesia [None]
  - Incorrect drug administration duration [None]
  - Eyelid oedema [None]

NARRATIVE: CASE EVENT DATE: 20140724
